FAERS Safety Report 7905425-5 (Version None)
Quarter: 2011Q4

REPORT INFORMATION
  Report Type: 
  Country: None (occurrence: None)
  Receive Date: 20111109
  Receipt Date: 20111027
  Transmission Date: 20120403
  Serious: Yes (Hospitalization)
  Sender: FDA-Public Use
  Company Number: US-MYLANLABS-2011S1022645

PATIENT
  Age: 41 Year
  Sex: Female

DRUGS (1)
  1. VERAPAMIL HYDROCHLORIDE [Suspect]
     Indication: INTENTIONAL OVERDOSE
     Dosage: 240MG; INGESTED 80 SUSTAINED RELEASE TABLETS
     Route: 048

REACTIONS (11)
  - ARTERIAL THROMBOSIS LIMB [None]
  - ATRIOVENTRICULAR BLOCK COMPLETE [None]
  - METABOLIC ACIDOSIS [None]
  - HYPOXIA [None]
  - RENAL FAILURE [None]
  - COLITIS ISCHAEMIC [None]
  - SUICIDE ATTEMPT [None]
  - SINUS TACHYCARDIA [None]
  - LEUKOCYTOSIS [None]
  - INTENTIONAL OVERDOSE [None]
  - HYPOTENSION [None]
